FAERS Safety Report 6938697-4 (Version None)
Quarter: 2010Q3

REPORT INFORMATION
  Report Type: 
  Country: None (occurrence: None)
  Receive Date: 20100824
  Receipt Date: 20100811
  Transmission Date: 20110219
  Serious: Yes (Other)
  Sender: FDA-Public Use
  Company Number: PHHY2010CA53114

PATIENT
  Sex: Female

DRUGS (1)
  1. SANDOSTATIN LAR [Suspect]
     Indication: GASTRIC CANCER
     Dosage: 40 MG, ONCE A MONTH
     Route: 030
     Dates: start: 20100809

REACTIONS (2)
  - ASTHENIA [None]
  - MOBILITY DECREASED [None]
